FAERS Safety Report 4271225-3 (Version None)
Quarter: 2004Q1

REPORT INFORMATION
  Report Type: 
  Country: None (occurrence: None)
  Receive Date: 20040113
  Receipt Date: 20031229
  Transmission Date: 20041129
  Serious: Yes (Disabling)
  Sender: FDA-Public Use
  Company Number: F01200301483

PATIENT
  Age: 59 Year
  Sex: Male

DRUGS (4)
  1. OXALIPLATIN, SOLUTION, 260 MG [Suspect]
     Indication: COLON CANCER
     Dosage: 260 MG Q3W, INTRAVENOUS NOS
     Route: 042
     Dates: start: 20031102, end: 20031102
  2. CAPECITABINE, TABLET, 2000 MG [Suspect]
     Indication: COLON CANCER
     Dosage: 2000 MG TWICE A DAY PER ORAL FROM D1 TO D15
     Route: 048
     Dates: start: 20031102, end: 20031116
  3. LITHIUM CARBONATE [Concomitant]
  4. PERPHENAN (PERPHENAZINE) [Concomitant]

REACTIONS (1)
  - PSYCHOTIC DISORDER [None]
